FAERS Safety Report 19113272 (Version 3)
Quarter: 2021Q4

REPORT INFORMATION
  Report Type: Spontaneous
  Country: US (occurrence: US)
  Receive Date: 20210409
  Receipt Date: 20211119
  Transmission Date: 20220304
  Serious: Yes (Other)
  Sender: FDA-Public Use
  Company Number: US-009507513-2102USA008405

PATIENT
  Sex: Male

DRUGS (4)
  1. ZOSTAVAX [Suspect]
     Active Substance: VARICELLA-ZOSTER VIRUS STRAIN OKA/MERCK LIVE ANTIGEN
     Indication: Prophylaxis
     Dosage: .65 MILLILITER
     Route: 058
     Dates: start: 20171116
  2. STERILE DILUENT (WATER) [Suspect]
     Active Substance: WATER
     Indication: Prophylaxis
     Dosage: UNK
     Dates: start: 20171116
  3. CLONIDINE [Concomitant]
     Active Substance: CLONIDINE
     Indication: Diabetes mellitus
     Dosage: 0.2 MILLIGRAM
     Dates: start: 1978
  4. LOSARTAN [Concomitant]
     Active Substance: LOSARTAN
     Indication: Hypertension
     Dosage: 75 MILLIGRAM
     Dates: start: 1978

REACTIONS (5)
  - Spinal operation [Unknown]
  - Post herpetic neuralgia [Unknown]
  - Fall [Unknown]
  - Back pain [Unknown]
  - Herpes zoster [Unknown]

NARRATIVE: CASE EVENT DATE: 20171123
